FAERS Safety Report 25423184 (Version 1)
Quarter: 2025Q2

REPORT INFORMATION
  Report Type: Spontaneous
  Country: US (occurrence: US)
  Receive Date: 20250611
  Receipt Date: 20250611
  Transmission Date: 20250716
  Serious: No
  Sender: PIERRE FABRE MEDICAMENT
  Company Number: US-PFM-2024-06148

PATIENT
  Sex: Female
  Weight: 4.9 kg

DRUGS (1)
  1. HEMANGEOL [Suspect]
     Active Substance: PROPRANOLOL HYDROCHLORIDE
     Indication: Eye haemangioma
     Dosage: 0.5 ML, BID (2/DAY)

REACTIONS (3)
  - Weight gain poor [Unknown]
  - Infantile spitting up [Unknown]
  - Weight decreased [Unknown]
